FAERS Safety Report 10084849 (Version 14)
Quarter: 2018Q2

REPORT INFORMATION
  Report Type: Report from Study
  Country: US (occurrence: US)
  Receive Date: 20140417
  Receipt Date: 20180402
  Transmission Date: 20180711
  Serious: Yes (Hospitalization, Other)
  Sender: FDA-Public Use
  Company Number: US-SANOFI-AVENTIS-2013SA092982

PATIENT
  Age: 64 Year
  Sex: Female
  Weight: 47 kg

DRUGS (8)
  1. AUBAGIO [Suspect]
     Active Substance: TERIFLUNOMIDE
     Indication: MULTIPLE SCLEROSIS
     Route: 048
     Dates: start: 20140503, end: 20140731
  2. AUBAGIO [Suspect]
     Active Substance: TERIFLUNOMIDE
     Indication: MULTIPLE SCLEROSIS
     Route: 048
     Dates: start: 2012, end: 20140403
  3. AUBAGIO [Suspect]
     Active Substance: TERIFLUNOMIDE
     Indication: MULTIPLE SCLEROSIS
     Route: 048
  4. AUBAGIO [Suspect]
     Active Substance: TERIFLUNOMIDE
     Indication: MULTIPLE SCLEROSIS
     Route: 048
     Dates: start: 2012, end: 20140403
  5. AUBAGIO [Suspect]
     Active Substance: TERIFLUNOMIDE
     Indication: MULTIPLE SCLEROSIS
     Route: 048
     Dates: start: 20140503, end: 20140731
  6. AUBAGIO [Suspect]
     Active Substance: TERIFLUNOMIDE
     Indication: MULTIPLE SCLEROSIS
     Route: 048
  7. AUBAGIO [Suspect]
     Active Substance: TERIFLUNOMIDE
     Indication: MULTIPLE SCLEROSIS
     Route: 048
     Dates: start: 20140425
  8. AUBAGIO [Suspect]
     Active Substance: TERIFLUNOMIDE
     Indication: MULTIPLE SCLEROSIS
     Route: 048
     Dates: start: 20140425

REACTIONS (30)
  - Visual impairment [Not Recovered/Not Resolved]
  - Fractured coccyx [Unknown]
  - Gait inability [Not Recovered/Not Resolved]
  - Eczema [Unknown]
  - Hyperhidrosis [Unknown]
  - Skin burning sensation [Unknown]
  - Loose associations [Unknown]
  - Musculoskeletal disorder [Unknown]
  - Rib fracture [Recovered/Resolved]
  - Pneumonia [Recovered/Resolved]
  - Multiple sclerosis relapse [Not Recovered/Not Resolved]
  - Fall [Not Recovered/Not Resolved]
  - Nausea [Unknown]
  - Hypoaesthesia [Unknown]
  - Fall [Not Recovered/Not Resolved]
  - Balance disorder [Not Recovered/Not Resolved]
  - Staphylococcal infection [Unknown]
  - Depersonalisation/derealisation disorder [Unknown]
  - Dry mouth [Unknown]
  - Melanocytic naevus [Unknown]
  - Alopecia [Unknown]
  - Systemic lupus erythematosus [Unknown]
  - Dizziness [Not Recovered/Not Resolved]
  - Dysphagia [Unknown]
  - Abdominal discomfort [Unknown]
  - Sensory loss [Unknown]
  - Multiple sclerosis [Not Recovered/Not Resolved]
  - Feeling abnormal [Unknown]
  - Upper limb fracture [Unknown]
  - Diplopia [Unknown]

NARRATIVE: CASE EVENT DATE: 20140324
